FAERS Safety Report 18639580 (Version 1)
Quarter: 2020Q4

REPORT INFORMATION
  Report Type: Spontaneous
  Country: US (occurrence: US)
  Receive Date: 20201220
  Receipt Date: 20201220
  Transmission Date: 20210114
  Serious: No
  Sender: FDA-Public Use
  Company Number: US-ENDO PHARMACEUTICALS INC-2020-000657

PATIENT
  Age: 43 Year
  Sex: Male

DRUGS (1)
  1. APLISOL [Suspect]
     Active Substance: TUBERCULIN PURIFIED PROTEIN DERIVATIVE
     Indication: TUBERCULIN TEST
     Dosage: 0.1 ML, SINGLE
     Route: 023
     Dates: start: 20200121, end: 20200121

REACTIONS (3)
  - Erythema [Unknown]
  - Injection site vesicles [Unknown]
  - Injection site oedema [Unknown]

NARRATIVE: CASE EVENT DATE: 20200121
